FAERS Safety Report 9631423 (Version 1)
Quarter: 2013Q4

REPORT INFORMATION
  Report Type: Spontaneous
  Country: CH (occurrence: None)
  Receive Date: 20131016
  Receipt Date: 20131016
  Transmission Date: 20140711
  Serious: Yes (Other)
  Sender: FDA-Public Use
  Company Number: 20130531

PATIENT
  Age: 81 Year
  Sex: Male

DRUGS (3)
  1. FERINJECT (FERRIC CARBOXYMALTOSE-VIFOR) [Suspect]
     Indication: FACTOR IX DEFICIENCY
     Route: 042
     Dates: start: 20120713, end: 20130422
  2. BETAFACT (FACTOR IX) [Concomitant]
  3. EXACYL (TRANEXAMIC ACID) [Concomitant]

REACTIONS (15)
  - Areflexia [None]
  - Intervertebral disc degeneration [None]
  - Gastrointestinal stromal tumour [None]
  - Serum ferritin increased [None]
  - General physical health deterioration [None]
  - Asthenia [None]
  - Weight decreased [None]
  - Off label use [None]
  - Muscular weakness [None]
  - Musculoskeletal chest pain [None]
  - Back pain [None]
  - Sciatica [None]
  - Decreased appetite [None]
  - Diarrhoea [None]
  - Gait disturbance [None]
